FAERS Safety Report 5222170-8 (Version None)
Quarter: 2007Q1

REPORT INFORMATION
  Report Type: 
  Country: None (occurrence: None)
  Receive Date: 20070129
  Receipt Date: 20060821
  Transmission Date: 20070707
  Serious: No
  Sender: FDA-Public Use
  Company Number: 2006-04588

PATIENT
  Age: 55 Year
  Sex: Female
  Weight: 63.6 kg

DRUGS (3)
  1. BUPROPION HYDROCHLORIDE [Suspect]
     Indication: DEPRESSION
     Dosage: 100MG TWICE PER DAY
     Route: 048
     Dates: start: 20060731
  2. WELLBUTRIN [Suspect]
     Indication: DEPRESSION
     Dosage: 100MG TWICE PER DAY
     Route: 048
     Dates: start: 20060201, end: 20060730
  3. NO CONCURRENT MEDICATION [Concomitant]

REACTIONS (3)
  - EYE PRURITUS [None]
  - HEADACHE [None]
  - LETHARGY [None]
